FAERS Safety Report 5828256-9 (Version None)
Quarter: 2008Q3

REPORT INFORMATION
  Report Type: 
  Country: None (occurrence: None)
  Receive Date: 20080731
  Receipt Date: 20080724
  Transmission Date: 20090109
  Serious: Yes (Death)
  Sender: FDA-Public Use
  Company Number: GB-TEVA-175046ISR

PATIENT
  Sex: Male
  Weight: 90 kg

DRUGS (1)
  1. HALOPERIDOL [Suspect]
     Route: 048
     Dates: start: 20070123, end: 20070131

REACTIONS (1)
  - DELIRIUM [None]
